FAERS Safety Report 4739593-3 (Version None)
Quarter: 2005Q3

REPORT INFORMATION
  Report Type: 
  Country: None (occurrence: None)
  Receive Date: 20050810
  Receipt Date: 20050408
  Transmission Date: 20060218
  Serious: No
  Sender: FDA-Public Use
  Company Number: US-GLAXOSMITHKLINE-A0553369A

PATIENT
  Age: 59 Year
  Sex: Female

DRUGS (7)
  1. PAXIL [Suspect]
     Indication: PANIC DISORDER
     Route: 048
  2. PAXIL [Suspect]
     Dosage: 25MG PER DAY
     Route: 048
     Dates: start: 20031001
  3. COREG [Concomitant]
  4. CAPOZIDE [Concomitant]
  5. SYNTHROID [Concomitant]
  6. NEURONTIN [Concomitant]
  7. AVANDAMET [Concomitant]

REACTIONS (2)
  - CRYING [None]
  - EMOTIONAL DISORDER [None]
